FAERS Safety Report 9058454 (Version 1)
Quarter: 2013Q1

REPORT INFORMATION
  Report Type: Spontaneous
  Country: US (occurrence: None)
  Receive Date: 20130205
  Receipt Date: 20130205
  Transmission Date: 20140127
  Serious: No
  Sender: FDA-Public Use
  Company Number: None

PATIENT
  Age: 68 Year
  Sex: 0
  Weight: 58.97 kg

DRUGS (2)
  1. SLEEP AID 30 MG [Suspect]
     Indication: INFLUENZA
     Dosage: 1 PILL TAKEN ONE TIME PO
     Route: 048
     Dates: start: 20130110, end: 20130111
  2. NYQUIL [Suspect]
     Indication: INSOMNIA
     Dosage: I SWALLOW TAKEN TWICE PO
     Route: 048
     Dates: start: 20130203, end: 20130203

REACTIONS (6)
  - Headache [None]
  - Muscular weakness [None]
  - Musculoskeletal stiffness [None]
  - Movement disorder [None]
  - Insomnia [None]
  - Malaise [None]
